FAERS Safety Report 7620698-4 (Version None)
Quarter: 2011Q3

REPORT INFORMATION
  Report Type: 
  Country: None (occurrence: None)
  Receive Date: 20110719
  Receipt Date: 20110628
  Transmission Date: 20111222
  Serious: Yes (Hospitalization, Congenital Anomaly)
  Sender: FDA-Public Use
  Company Number: US-GLAXOSMITHKLINE-A0930144A

PATIENT
  Sex: Male
  Weight: 0.9 kg

DRUGS (4)
  1. IRON SUPPLEMENT [Concomitant]
  2. PAROXETINE HCL [Suspect]
     Indication: DEPRESSION
     Route: 064
     Dates: start: 20030901
  3. VITAMIN AND MINERAL PRENATAL SUPPLEMENT W/ FOLIC ACID CAP [Concomitant]
  4. PAXIL [Suspect]
     Indication: DEPRESSION
     Dosage: 40MG IN THE MORNING
     Route: 064
     Dates: start: 20011031, end: 20031023

REACTIONS (15)
  - CEREBRAL INFARCTION [None]
  - OBSESSIVE-COMPULSIVE DISORDER [None]
  - RESPIRATORY DISTRESS [None]
  - MATERNAL EXPOSURE DURING PREGNANCY [None]
  - EPILEPSY [None]
  - ENCEPHALOPATHY [None]
  - ATTENTION DEFICIT/HYPERACTIVITY DISORDER [None]
  - PERIVENTRICULAR LEUKOMALACIA [None]
  - CEREBRAL PALSY [None]
  - CONGENITAL BRAIN DAMAGE [None]
  - DEVELOPMENTAL DELAY [None]
  - PORENCEPHALY [None]
  - RETINOPATHY OF PREMATURITY [None]
  - PATENT DUCTUS ARTERIOSUS [None]
  - NECROTISING COLITIS [None]
